FAERS Safety Report 17062967 (Version 1)
Quarter: 2019Q4

REPORT INFORMATION
  Report Type: Spontaneous
  Country: AZ (occurrence: AZ)
  Receive Date: 20191122
  Receipt Date: 20191122
  Transmission Date: 20200122
  Serious: Yes (Life-Threatening)
  Sender: FDA-Public Use
  Company Number: AZ-ASTELLAS-2019US044953

PATIENT
  Sex: Female

DRUGS (1)
  1. PROGRAF [Suspect]
     Active Substance: TACROLIMUS
     Indication: PRODUCT USED FOR UNKNOWN INDICATION
     Route: 048

REACTIONS (2)
  - Graft loss [Unknown]
  - Nephropathy toxic [Unknown]

NARRATIVE: CASE EVENT DATE: 201909
